FAERS Safety Report 25052579 (Version 1)
Quarter: 2025Q1

REPORT INFORMATION
  Report Type: Spontaneous
  Country: US (occurrence: US)
  Receive Date: 20250307
  Receipt Date: 20250307
  Transmission Date: 20250409
  Serious: No
  Sender: HILL DERMACEUTICALS, INC.
  Company Number: US-Hill Dermaceuticals, Inc.-2172487

PATIENT
  Age: 35 Year
  Sex: Female

DRUGS (5)
  1. DERMA-SMOOTHE/FS [Suspect]
     Active Substance: FLUOCINOLONE ACETONIDE
     Indication: Product used for unknown indication
  2. OTEZLA [Suspect]
     Active Substance: APREMILAST
  3. SELENIUM SULFIDE [Suspect]
     Active Substance: SELENIUM SULFIDE
  4. DESOXIMETASONE [Suspect]
     Active Substance: DESOXIMETASONE
  5. HUMIRA [Suspect]
     Active Substance: ADALIMUMAB

REACTIONS (2)
  - Pain [Unknown]
  - Pruritus [Unknown]
